FAERS Safety Report 9656549 (Version 1)
Quarter: 2013Q4

REPORT INFORMATION
  Report Type: Spontaneous
  Country: GB (occurrence: None)
  Receive Date: 20131028
  Receipt Date: 20131028
  Transmission Date: 20140711
  Serious: Yes (Other)
  Sender: FDA-Public Use
  Company Number: NGX_02012_2013

PATIENT
  Age: 65 Year
  Sex: Female

DRUGS (11)
  1. QUTENZA [Suspect]
     Indication: PRODUCT USED FOR UNKNOWN INDICATION
     Dosage: UNKNOWN UNTIL NOT CONTINUING, (0.025 %, 1 TOTAL, APPLIED TO THE HIP] TOPICAL
     Route: 061
  2. ATORVASTATIN [Concomitant]
  3. CARBOCISTEINE [Concomitant]
  4. CETIRIZINE [Concomitant]
  5. CLOPIDOGREL [Concomitant]
  6. CODEINE [Concomitant]
  7. EPIPEN [Concomitant]
  8. GAVISCON [Concomitant]
  9. INHALERS [Concomitant]
  10. LANSOPRAZOLE [Concomitant]
  11. PARACETAMOL [Concomitant]

REACTIONS (2)
  - Glossodynia [None]
  - Swollen tongue [None]
